FAERS Safety Report 7169759-7 (Version None)
Quarter: 2010Q4

REPORT INFORMATION
  Report Type: 
  Country: None (occurrence: None)
  Receive Date: 20101217
  Receipt Date: 20100223
  Transmission Date: 20110411
  Serious: No
  Sender: FDA-Public Use
  Company Number: A0845938A

PATIENT
  Age: 63 Year
  Sex: Female

DRUGS (1)
  1. SORIATANE [Suspect]
     Indication: PUSTULAR PSORIASIS
     Dosage: 25MG PER DAY
     Route: 048
     Dates: start: 20070101

REACTIONS (5)
  - ABDOMINAL PAIN [None]
  - ARTHRALGIA [None]
  - BLADDER DISORDER [None]
  - DRY EYE [None]
  - DRY MOUTH [None]
